FAERS Safety Report 8857993 (Version 1)
Quarter: 2012Q4

REPORT INFORMATION
  Report Type: 
  Country: US (occurrence: US)
  Receive Date: 20121024
  Receipt Date: 20121024
  Transmission Date: 20130627
  Serious: No
  Sender: FDA-Public Use
  Company Number: US-AMGEN-USASP2012003603

PATIENT
  Age: 61 Year
  Sex: Female

DRUGS (2)
  1. ENBREL [Suspect]
     Indication: RHEUMATOID ARTHRITIS
     Dosage: UNK
     Dates: start: 20101222, end: 2011
  2. PLAQUENIL                          /00072602/ [Concomitant]

REACTIONS (3)
  - Fall [Recovered/Resolved]
  - Ligament sprain [Recovered/Resolved]
  - Arthralgia [Not Recovered/Not Resolved]
